FAERS Safety Report 9480046 (Version 1)
Quarter: 2013Q3

REPORT INFORMATION
  Report Type: Spontaneous
  Country: US (occurrence: US)
  Receive Date: 20130828
  Receipt Date: 20130828
  Transmission Date: 20140515
  Serious: Yes (Hospitalization)
  Sender: FDA-Public Use
  Company Number: US-AMGEN-KDL059115

PATIENT
  Age: 73 Year
  Sex: Male

DRUGS (3)
  1. ENBREL [Suspect]
     Indication: PSORIATIC ARTHROPATHY
     Dosage: 25 MG, UNK
     Route: 058
     Dates: start: 19980101
  2. METHOTREXATE [Concomitant]
  3. HYDROXYCHLOROQUINE PHOSPHATE [Concomitant]

REACTIONS (3)
  - Nephrolithiasis [Unknown]
  - Abdominal pain [Unknown]
  - Pyrexia [Unknown]
